FAERS Safety Report 4718413-7 (Version None)
Quarter: 2005Q3

REPORT INFORMATION
  Report Type: 
  Country: None (occurrence: None)
  Receive Date: 20050720
  Receipt Date: 20050624
  Transmission Date: 20060218
  Serious: No
  Sender: FDA-Public Use
  Company Number: US-MERCK-0506USA03822

PATIENT
  Sex: Male

DRUGS (2)
  1. ZETIA [Suspect]
     Indication: BLOOD CHOLESTEROL INCREASED
     Route: 048
  2. PRAVACHOL [Concomitant]
     Route: 065

REACTIONS (2)
  - CHOLELITHIASIS [None]
  - HEPATIC ENZYME INCREASED [None]
